FAERS Safety Report 6571842-1 (Version None)
Quarter: 2010Q1

REPORT INFORMATION
  Report Type: 
  Country: None (occurrence: None)
  Receive Date: 20100205
  Receipt Date: 20100127
  Transmission Date: 20100710
  Serious: Yes (Other)
  Sender: FDA-Public Use
  Company Number: US-SANOFI-AVENTIS-2010SA005980

PATIENT
  Age: 66 Year
  Sex: Female

DRUGS (2)
  1. LANTUS [Suspect]
     Dosage: DOSE:15 UNIT(S)
     Route: 058
  2. OPTICLICK [Suspect]
     Dosage: STARTED USE OVER A YEAR AGO

REACTIONS (5)
  - BRONCHITIS [None]
  - CATARACT [None]
  - PNEUMONIA [None]
  - SPINAL FRACTURE [None]
  - VASCULAR GRAFT [None]
